FAERS Safety Report 4668695-5 (Version None)
Quarter: 2005Q2

REPORT INFORMATION
  Report Type: 
  Country: None (occurrence: None)
  Receive Date: 20050523
  Receipt Date: 19990819
  Transmission Date: 20051028
  Serious: Yes (Hospitalization)
  Sender: FDA-Public Use
  Company Number: T99HQ02165.5

PATIENT
  Age: 77 Year
  Sex: Male
  Weight: 89 kg

DRUGS (4)
  1. ZOLEDRONATE VS PLACEBO [Suspect]
     Indication: METASTASES TO BONE
     Dosage: 4MG TIW
     Route: 065
     Dates: start: 19990625
  2. DIGOXIN [Concomitant]
     Indication: ARRHYTHMIA
     Dosage: UKN,QD
     Route: 048
  3. ASCAL [Concomitant]
     Dosage: 1 TAB,UKN,QD
     Route: 048
     Dates: start: 19990625
  4. MULTI-VITAMINS [Concomitant]
     Dosage: 1 TAB,UKN,QD
     Route: 048
     Dates: start: 19990625

REACTIONS (6)
  - ABSCESS [None]
  - CONDITION AGGRAVATED [None]
  - DISEASE PROGRESSION [None]
  - OSTEOMYELITIS [None]
  - SINUSITIS [None]
  - STAPHYLOCOCCAL INFECTION [None]
